FAERS Safety Report 23873856 (Version 2)
Quarter: 2024Q3

REPORT INFORMATION
  Report Type: Report from Study
  Country: JP (occurrence: JP)
  Receive Date: 20240520
  Receipt Date: 20240709
  Transmission Date: 20241017
  Serious: Yes (Other)
  Sender: ROCHE
  Company Number: JP-CHUGAI-2023038343AA

PATIENT
  Age: 82 Year
  Sex: Male
  Weight: 58.5 kg

DRUGS (18)
  1. POLIVY [Suspect]
     Active Substance: POLATUZUMAB VEDOTIN-PIIQ
     Indication: Diffuse large B-cell lymphoma
     Route: 065
     Dates: start: 20231012, end: 20240110
  2. RITUXIMAB [Concomitant]
     Active Substance: RITUXIMAB
     Indication: Diffuse large B-cell lymphoma
     Dosage: 600 MILLIGRAM, SINGLE
     Route: 042
     Dates: start: 20231012, end: 20231012
  3. RITUXIMAB [Concomitant]
     Active Substance: RITUXIMAB
     Dosage: 580 MILLIGRAM
     Route: 042
     Dates: start: 20231103, end: 20240308
  4. CYCLOPHOSPHAMIDE [Concomitant]
     Active Substance: CYCLOPHOSPHAMIDE
     Indication: Diffuse large B-cell lymphoma
     Dosage: 1200 MILLIGRAM, SINGLE
     Route: 042
     Dates: start: 20231012, end: 20231012
  5. CYCLOPHOSPHAMIDE [Concomitant]
     Active Substance: CYCLOPHOSPHAMIDE
     Dosage: 1100 MILLIGRAM
     Route: 042
     Dates: start: 20231103, end: 20231125
  6. CYCLOPHOSPHAMIDE [Concomitant]
     Active Substance: CYCLOPHOSPHAMIDE
     Dosage: 900 MILLIGRAM
     Route: 042
     Dates: start: 20231216, end: 20240110
  7. DOXORUBICIN HYDROCHLORIDE [Concomitant]
     Active Substance: DOXORUBICIN HYDROCHLORIDE
     Indication: Diffuse large B-cell lymphoma
     Dosage: 80 MILLIGRAM, SINGLE
     Route: 042
     Dates: start: 20231012, end: 20231012
  8. DOXORUBICIN HYDROCHLORIDE [Concomitant]
     Active Substance: DOXORUBICIN HYDROCHLORIDE
     Dosage: 75 MILLIGRAM
     Route: 042
     Dates: start: 20231103, end: 20231125
  9. DOXORUBICIN HYDROCHLORIDE [Concomitant]
     Active Substance: DOXORUBICIN HYDROCHLORIDE
     Dosage: 60 MILLIGRAM
     Route: 042
     Dates: start: 20231216, end: 20240110
  10. DOXORUBICIN HYDROCHLORIDE [Concomitant]
     Active Substance: DOXORUBICIN HYDROCHLORIDE
     Dosage: UNK
  11. PREDNISOLONE [Concomitant]
     Active Substance: PREDNISOLONE
     Indication: Diffuse large B-cell lymphoma
     Dosage: 60 MILLIGRAM, QD
     Route: 050
     Dates: start: 20231012, end: 20231016
  12. PREDNISOLONE [Concomitant]
     Active Substance: PREDNISOLONE
     Dosage: 60 MILLIGRAM, QD
     Route: 050
     Dates: start: 20231103, end: 20231107
  13. PREDNISOLONE [Concomitant]
     Active Substance: PREDNISOLONE
     Dosage: 60 MILLIGRAM, QD
     Route: 050
     Dates: start: 20231125, end: 20231129
  14. PREDNISOLONE [Concomitant]
     Active Substance: PREDNISOLONE
     Dosage: 60 MILLIGRAM, QD
     Route: 050
     Dates: start: 20231216, end: 20231220
  15. PREDNISOLONE [Concomitant]
     Active Substance: PREDNISOLONE
     Dosage: 60 MILLIGRAM, QD
     Route: 050
     Dates: start: 20240110, end: 20240114
  16. METHOTREXATE [Concomitant]
     Active Substance: METHOTREXATE
     Dosage: 15MG/BODY/DAY
     Route: 065
     Dates: start: 20231106, end: 20231106
  17. FILGRASTIM [Concomitant]
     Active Substance: FILGRASTIM
     Dosage: UNK
     Route: 065
  18. FILGRASTIM [Concomitant]
     Active Substance: FILGRASTIM
     Dosage: UNK

REACTIONS (5)
  - Cardiac failure [Recovering/Resolving]
  - Neutropenia [Recovering/Resolving]
  - Oedema peripheral [Unknown]
  - Neutrophil count decreased [Recovered/Resolved]
  - Brain natriuretic peptide increased [Unknown]

NARRATIVE: CASE EVENT DATE: 20231022
